FAERS Safety Report 6186808-3 (Version None)
Quarter: 2009Q2

REPORT INFORMATION
  Report Type: 
  Country: None (occurrence: None)
  Receive Date: 20090508
  Receipt Date: 20090508
  Transmission Date: 20091009
  Serious: Yes (Hospitalization)
  Sender: FDA-Public Use
  Company Number: None

PATIENT
  Age: 73 Year
  Sex: Male
  Weight: 129.4 kg

DRUGS (4)
  1. PHENYTOIN [Suspect]
     Indication: ATRIAL FIBRILLATION
     Dosage: 400 MG TID PO
     Route: 048
     Dates: start: 20090218, end: 20090504
  2. PHENYTOIN [Suspect]
     Indication: CONVULSION
     Dosage: 400 MG TID PO
     Route: 048
     Dates: start: 20090218, end: 20090504
  3. PHENYTOIN [Suspect]
     Indication: HYPERLIPIDAEMIA
     Dosage: 400 MG TID PO
     Route: 048
     Dates: start: 20090218, end: 20090504
  4. PHENYTOIN [Suspect]
     Indication: HYPERTENSION
     Dosage: 400 MG TID PO
     Route: 048
     Dates: start: 20090218, end: 20090504

REACTIONS (6)
  - CONFUSIONAL STATE [None]
  - DISORIENTATION [None]
  - FALL [None]
  - HEART RATE INCREASED [None]
  - MOANING [None]
  - MUSCULOSKELETAL PAIN [None]
